FAERS Safety Report 10195854 (Version 1)
Quarter: 2014Q2

REPORT INFORMATION
  Report Type: Spontaneous
  Country: US (occurrence: None)
  Receive Date: 20140522
  Receipt Date: 20140522
  Transmission Date: 20141212
  Serious: Yes (Death)
  Sender: FDA-Public Use
  Company Number: B0993378A

PATIENT
  Age: 80 Year
  Sex: Male

DRUGS (2)
  1. ALLOPURINOL [Suspect]
     Indication: GOUT
     Route: 048
  2. ?TRIAMTERENE+HYDROCHLOROTHIAZIDE [Suspect]
     Indication: HYPERTENSION
     Dosage: ALTERNATE DAYS
     Route: 048

REACTIONS (23)
  - Drug reaction with eosinophilia and systemic symptoms [None]
  - Diarrhoea [None]
  - Dehydration [None]
  - Wheezing [None]
  - Rash maculo-papular [None]
  - Rash pruritic [None]
  - Dysgeusia [None]
  - Chills [None]
  - Malaise [None]
  - Dysuria [None]
  - Decreased appetite [None]
  - Nausea [None]
  - Hypophagia [None]
  - Hepatitis [None]
  - Eosinophilia [None]
  - Leukocytosis [None]
  - Renal failure acute [None]
  - Vasculitis [None]
  - Cerebrovascular accident [None]
  - Respiratory distress [None]
  - Respiratory arrest [None]
  - Hypotension [None]
  - Shock [None]
